FAERS Safety Report 17982888 (Version 2)
Quarter: 2020Q3

REPORT INFORMATION
  Report Type: Spontaneous
  Country: BE (occurrence: BE)
  Receive Date: 20200706
  Receipt Date: 20200716
  Transmission Date: 20201103
  Serious: Yes (Hospitalization, Other)
  Sender: FDA-Public Use
  Company Number: BE-MYLANLABS-2020M1060353

PATIENT
  Age: 83 Year
  Sex: Female
  Weight: 64 kg

DRUGS (13)
  1. IMRALDI [Suspect]
     Active Substance: ADALIMUMAB
     Indication: PRODUCT USED FOR UNKNOWN INDICATION
     Dosage: 40 MILLIGRAM, BIWEEKLY
     Route: 058
     Dates: start: 20191014, end: 20200330
  2. COVERSYL                           /00790702/ [Suspect]
     Active Substance: PERINDOPRIL
     Indication: HYPERTENSION
     Dosage: 2.5 MILLIGRAM, QD
     Route: 065
     Dates: start: 20200507, end: 20200526
  3. TRAJENTA [Suspect]
     Active Substance: LINAGLIPTIN
     Indication: TYPE 2 DIABETES MELLITUS
     Dosage: 5 MILLIGRAM, QD
     Route: 065
     Dates: start: 201606
  4. METFORMIN [Suspect]
     Active Substance: METFORMIN HYDROCHLORIDE
     Indication: TYPE 2 DIABETES MELLITUS
     Dosage: 500 MILLIGRAM, QD
     Route: 065
     Dates: start: 2019
  5. UNI DIAMICRON [Suspect]
     Active Substance: GLICLAZIDE
     Indication: TYPE 2 DIABETES MELLITUS
     Dosage: 60 MILLIGRAM, QD
     Route: 065
     Dates: start: 20140730, end: 20200526
  6. D?CURE [Concomitant]
     Active Substance: CHOLECALCIFEROL
     Indication: PROPHYLAXIS
     Dosage: UNKNOWN
     Route: 065
     Dates: start: 2012
  7. COVERSYL                           /00790702/ [Suspect]
     Active Substance: PERINDOPRIL
     Indication: PROTEINURIA
     Dosage: UNK
  8. LIPANTHYL [Suspect]
     Active Substance: FENOFIBRATE
     Indication: HYPERLIPIDAEMIA
     Dosage: 145 MILLIGRAM, QD
     Route: 065
     Dates: start: 2012, end: 20200526
  9. OMEPRAZOLE. [Concomitant]
     Active Substance: OMEPRAZOLE
     Indication: GASTROOESOPHAGEAL REFLUX DISEASE
     Dosage: 20 MILLIGRAM, QD
     Route: 065
     Dates: start: 2012
  10. MAGNESPASMYL [Concomitant]
     Indication: MUSCLE SPASMS
     Dosage: UNKNOWN
     Route: 065
     Dates: start: 2020
  11. HUMIRA [Suspect]
     Active Substance: ADALIMUMAB
     Indication: CROHN^S DISEASE
     Dosage: 40 MILLIGRAM, BIWEEKLY
     Route: 058
     Dates: start: 20200414
  12. RIVOTRIL [Concomitant]
     Active Substance: CLONAZEPAM
     Indication: MUSCLE SPASMS
     Dosage: 2 MILLIGRAM, QD
     Route: 065
     Dates: start: 20121204
  13. AMLOR [Concomitant]
     Active Substance: AMLODIPINE BESYLATE
     Indication: HYPERTENSION
     Dosage: 5 MILLIGRAM, QD
     Route: 065
     Dates: start: 2018

REACTIONS (14)
  - Polyarthritis [Unknown]
  - Erysipelas [Recovering/Resolving]
  - Dyspnoea [Not Recovered/Not Resolved]
  - Pyuria [Unknown]
  - Polyneuropathy [Unknown]
  - Acute kidney injury [Recovered/Resolved]
  - Chest pain [Not Recovered/Not Resolved]
  - Osteoarthritis [Unknown]
  - Dehydration [Not Recovered/Not Resolved]
  - Product substitution issue [Unknown]
  - Hyponatraemia [Recovered/Resolved]
  - Hypophagia [Recovered/Resolved]
  - Gastroenteritis viral [Recovered/Resolved]
  - Productive cough [Recovered/Resolved]

NARRATIVE: CASE EVENT DATE: 202001
